FAERS Safety Report 7197985-X (Version None)
Quarter: 2010Q4

REPORT INFORMATION
  Report Type: 
  Country: None (occurrence: None)
  Receive Date: 20101227
  Receipt Date: 20101217
  Transmission Date: 20110411
  Serious: Yes (Hospitalization)
  Sender: FDA-Public Use
  Company Number: FR-ROCHE-749001

PATIENT
  Sex: Female
  Weight: 63 kg

DRUGS (3)
  1. CAPECITABINE [Suspect]
     Dosage: AS PER PROTOCOL - ON DAYS 1 TO 14 EVERY 3 WEEKS
     Route: 048
  2. TRASTUZUMAB [Suspect]
     Dosage: LOADING DOSE - ADMINISTERED OVER 90 MINUTES - AS PER PROTOCOL
     Route: 042
  3. TRASTUZUMAB [Suspect]
     Dosage: MAINTENANCE DOSE - ADMINISTERED OVER 30 TO 90 MINUTES - AS PER PROTOCOL
     Route: 042

REACTIONS (1)
  - VOCAL CORD PARALYSIS [None]
